FAERS Safety Report 4579182-7 (Version None)
Quarter: 2005Q1

REPORT INFORMATION
  Report Type: 
  Country: None (occurrence: None)
  Receive Date: 20050208
  Receipt Date: 20050208
  Transmission Date: 20050727
  Serious: Yes (Life-Threatening, Hospitalization, Congenital Anomaly, Other)
  Sender: FDA-Public Use
  Company Number: None

PATIENT
  Age: 39 Year
  Sex: Female
  Weight: 63.5036 kg

DRUGS (1)
  1. CIPROFLOXACIN [Suspect]
     Indication: STEVENS-JOHNSON SYNDROME
     Dosage: 250MG   2 X DAILY   ORAL
     Route: 048
     Dates: start: 20050129, end: 20050207

REACTIONS (2)
  - STEVENS-JOHNSON SYNDROME [None]
  - THERMAL BURN [None]
